FAERS Safety Report 7425291-4 (Version None)
Quarter: 2011Q2

REPORT INFORMATION
  Report Type: 
  Country: None (occurrence: None)
  Receive Date: 20110420
  Receipt Date: 20110318
  Transmission Date: 20111010
  Serious: Yes (Hospitalization, Other)
  Sender: FDA-Public Use
  Company Number: US-BAYER-2011-022061

PATIENT
  Sex: Female
  Weight: 58.957 kg

DRUGS (10)
  1. YASMIN [Suspect]
     Indication: CONTRACEPTION
     Dosage: UNK
     Dates: start: 20010101, end: 20090101
  2. OXYCODONE [Concomitant]
     Dosage: UNK
     Dates: start: 20051128
  3. PROMETHAZINE [Concomitant]
     Dosage: UNK
     Dates: start: 20041019
  4. LEXAPRO [Concomitant]
     Dosage: 100 MG, UNK
     Dates: start: 20060929
  5. SEROQUEL [Concomitant]
     Dosage: 300 MG, UNK
     Dates: start: 20081125
  6. FLOMAX [Concomitant]
     Dosage: UNK
     Dates: start: 20090801
  7. YASMIN [Suspect]
     Indication: SKIN DISORDER
  8. CEPHALEXIN [Concomitant]
     Dosage: 500 MG, UNK
     Dates: start: 20060417
  9. PROPRANOLOL [Concomitant]
     Dosage: 20 MG, UNK
     Dates: start: 20060427
  10. PERCOCET [Concomitant]
     Dosage: UNK
     Dates: start: 20090801

REACTIONS (4)
  - GALLBLADDER DISORDER [None]
  - NEPHROLITHIASIS [None]
  - ABORTION SPONTANEOUS [None]
  - PREGNANCY [None]
